FAERS Safety Report 11554081 (Version 2)
Quarter: 2015Q4

REPORT INFORMATION
  Report Type: Spontaneous
  Country: US (occurrence: US)
  Receive Date: 20150925
  Receipt Date: 20151007
  Transmission Date: 20160304
  Serious: No
  Sender: FDA-Public Use
  Company Number: US-PFIZER INC-2015317188

PATIENT
  Age: 80 Year
  Sex: Female

DRUGS (2)
  1. GENOTROPIN MQ [Suspect]
     Active Substance: SOMATROPIN
     Indication: CONTUSION
  2. GENOTROPIN MQ [Suspect]
     Active Substance: SOMATROPIN
     Indication: SKIN HYPERTROPHY
     Dosage: UNK

REACTIONS (2)
  - Product use issue [Unknown]
  - Pain [Unknown]
